FAERS Safety Report 14776676 (Version 2)
Quarter: 2018Q2

REPORT INFORMATION
  Report Type: Report from Study
  Country: None (occurrence: US)
  Receive Date: 20180419
  Receipt Date: 20180613
  Transmission Date: 20180711
  Serious: Yes (Hospitalization)
  Sender: FDA-Public Use
  Company Number: US-ABBVIE-18K-163-2323784-00

PATIENT
  Sex: Female

DRUGS (1)
  1. HUMIRA [Suspect]
     Active Substance: ADALIMUMAB
     Indication: RHEUMATOID ARTHRITIS
     Route: 058
     Dates: end: 2018

REACTIONS (6)
  - Rheumatoid arthritis [Not Recovered/Not Resolved]
  - Staphylococcal infection [Recovering/Resolving]
  - Fungal infection [Not Recovered/Not Resolved]
  - Pneumothorax [Unknown]
  - Pneumonia [Recovering/Resolving]
  - Mobility decreased [Unknown]
